FAERS Safety Report 25905786 (Version 1)
Quarter: 2025Q4

REPORT INFORMATION
  Report Type: Spontaneous
  Country: EU (occurrence: EU)
  Receive Date: 20251010
  Receipt Date: 20251010
  Transmission Date: 20260117
  Serious: Yes (Other)
  Sender: TAKEDA
  Company Number: EU-PEI-202500021315

PATIENT
  Age: 79 Year
  Sex: Female
  Weight: 77 kg

DRUGS (1)
  1. ALBUMIN HUMAN [Suspect]
     Active Substance: ALBUMIN HUMAN
     Indication: Hypoalbuminaemia
     Dosage: 2 DOSAGE FORM
     Dates: start: 20250924, end: 20250924

REACTIONS (4)
  - Anaphylactic reaction [Unknown]
  - Pruritus [Unknown]
  - Stridor [Unknown]
  - Blood pressure decreased [Unknown]

NARRATIVE: CASE EVENT DATE: 20250924
